FAERS Safety Report 18206430 (Version 2)
Quarter: 2020Q3

REPORT INFORMATION
  Report Type: Spontaneous
  Country: DE (occurrence: DE)
  Receive Date: 20200828
  Receipt Date: 20200902
  Transmission Date: 20201103
  Serious: Yes (Other)
  Sender: FDA-Public Use
  Company Number: DE-PFIZER INC-2020331593

PATIENT
  Age: 40 Year
  Sex: Male

DRUGS (1)
  1. METHOTREXATE SODIUM. [Suspect]
     Active Substance: METHOTREXATE SODIUM
     Indication: IMMUNOGLOBULIN G4 RELATED DISEASE
     Dosage: 15 MG, WEEKLY

REACTIONS (3)
  - Product use in unapproved indication [Unknown]
  - Corneal graft failure [Unknown]
  - Off label use [Unknown]
